FAERS Safety Report 21050192 (Version 1)
Quarter: 2022Q3

REPORT INFORMATION
  Report Type: Spontaneous
  Country: US (occurrence: US)
  Receive Date: 20220706
  Receipt Date: 20220706
  Transmission Date: 20221027
  Serious: Yes (Other)
  Sender: FDA-Public Use
  Company Number: US-drreddys-LIT/USA/22/0151781

PATIENT
  Age: 40 Year
  Sex: Male

DRUGS (2)
  1. LEVETIRACETAM [Suspect]
     Active Substance: LEVETIRACETAM
     Indication: MELAS syndrome
  2. PHENYTOIN [Suspect]
     Active Substance: PHENYTOIN
     Indication: MELAS syndrome

REACTIONS (1)
  - Insomnia [Unknown]
